FAERS Safety Report 4988458-0 (Version None)
Quarter: 2006Q2

REPORT INFORMATION
  Report Type: 
  Country: None (occurrence: None)
  Receive Date: 20060502
  Receipt Date: 20060424
  Transmission Date: 20061013
  Serious: Yes (Other)
  Sender: FDA-Public Use
  Company Number: GB-SANOFI-SYNTHELABO-A01200603255

PATIENT
  Sex: Female

DRUGS (1)
  1. PLAQUENIL [Suspect]
     Indication: ANTIPHOSPHOLIPID ANTIBODIES
     Dosage: UNK
     Route: 065
     Dates: start: 20051001, end: 20060101

REACTIONS (5)
  - BLOOD DISORDER [None]
  - HAEMORRHAGE [None]
  - LEUKAEMIA [None]
  - NAIL BED BLEEDING [None]
  - WHITE BLOOD CELL COUNT DECREASED [None]
